FAERS Safety Report 13600724 (Version 32)
Quarter: 2023Q1

REPORT INFORMATION
  Report Type: Other
  Country: GB (occurrence: GB)
  Receive Date: 20170601
  Receipt Date: 20230105
  Transmission Date: 20230418
  Serious: Yes (Hospitalization, Other)
  Sender: FDA-Public Use
  Company Number: None

PATIENT
  Age: 55 Year
  Sex: Male

DRUGS (34)
  1. QUETIAPINE [Interacting]
     Active Substance: QUETIAPINE
     Indication: Depression
     Dosage: UNK
     Route: 048
     Dates: start: 20150826
  2. RAMIPRIL [Interacting]
     Active Substance: RAMIPRIL
     Indication: Cardiac failure
     Dosage: 1.25 MG, QD, TABLET
     Route: 048
     Dates: start: 20130813, end: 20160629
  3. RAMIPRIL [Interacting]
     Active Substance: RAMIPRIL
     Dosage: 1 MILLIGRAM, QD
     Route: 048
     Dates: start: 20130813, end: 20160629
  4. CARVEDILOL [Interacting]
     Active Substance: CARVEDILOL
     Indication: Angina pectoris
     Dosage: 25 MILLIGRAM, BID (50 MG, QD)
     Route: 065
     Dates: start: 20110616
  5. CARVEDILOL [Interacting]
     Active Substance: CARVEDILOL
     Dosage: 25 MILLIGRAM, QD
     Route: 065
     Dates: start: 20110616
  6. CARVEDILOL [Interacting]
     Active Substance: CARVEDILOL
     Dosage: 50 MILLIGRAM, QD
     Route: 065
     Dates: start: 20110616
  7. OMEPRAZOLE [Interacting]
     Active Substance: OMEPRAZOLE
     Indication: Dyspepsia
     Dosage: UNK, TABLET
     Route: 048
     Dates: start: 20140116
  8. OMEPRAZOLE [Interacting]
     Active Substance: OMEPRAZOLE
     Indication: Duodenal ulcer
     Dosage: UNK
     Route: 065
     Dates: start: 20140116
  9. BOCOCIZUMAB [Interacting]
     Active Substance: BOCOCIZUMAB
     Indication: Cardiovascular disorder
     Dosage: 150 MG, (EVERY 2 WEEKS)
     Route: 058
     Dates: start: 20150908, end: 20161101
  10. BOCOCIZUMAB [Interacting]
     Active Substance: BOCOCIZUMAB
     Indication: Angina pectoris
     Dosage: 25 MILLIGRAM, BID (50 MILLIGRAM, QD)
     Route: 058
     Dates: start: 20110616
  11. FUROSEMIDE [Interacting]
     Active Substance: FUROSEMIDE
     Indication: Left ventricular dysfunction
     Dosage: 40 MG, QD
     Route: 065
     Dates: start: 20160402
  12. FUROSEMIDE [Interacting]
     Active Substance: FUROSEMIDE
     Indication: Pulmonary oedema
  13. FUROSEMIDE [Interacting]
     Active Substance: FUROSEMIDE
     Indication: Lung disorder
  14. FUROSEMIDE [Interacting]
     Active Substance: FUROSEMIDE
     Indication: Pleural effusion
  15. ISOSORBIDE MONONITRATE [Interacting]
     Active Substance: ISOSORBIDE MONONITRATE
     Indication: Angina pectoris
     Dosage: 10 MG, QD, MODIFIED-RELEASE CAPSULE, HARD
     Route: 048
     Dates: start: 20160205
  16. ISOSORBIDE MONONITRATE [Interacting]
     Active Substance: ISOSORBIDE MONONITRATE
     Dosage: 10 MILLIGRAM, QD, TABLET
     Route: 048
     Dates: start: 20160205
  17. IVABRADINE [Interacting]
     Active Substance: IVABRADINE
     Indication: Angina pectoris
     Dosage: 5 MILLIGRAM, BID (10 MG, QD)
     Route: 065
     Dates: start: 20150211
  18. ASPIRIN [Concomitant]
     Active Substance: ASPIRIN
     Indication: Cardiovascular disorder
     Dosage: UNK
     Route: 065
     Dates: start: 20130708
  19. ATORVASTATIN [Concomitant]
     Active Substance: ATORVASTATIN
     Indication: Cardiovascular disorder
     Dosage: UNK
     Route: 065
     Dates: start: 20130708
  20. ENTRESTO [Concomitant]
     Active Substance: SACUBITRIL\VALSARTAN
     Indication: Left ventricular dysfunction
     Dosage: UNK, ENTRESTO 49/51
     Route: 048
     Dates: start: 20160701
  21. ENTRESTO [Concomitant]
     Active Substance: SACUBITRIL\VALSARTAN
     Dosage: UNK, 49/51
     Route: 065
     Dates: start: 20160601
  22. FOLIC ACID [Concomitant]
     Active Substance: FOLIC ACID
     Indication: Anaemia
     Dosage: UNK
     Route: 065
     Dates: start: 20131211
  23. NITROGLYCERIN [Concomitant]
     Active Substance: NITROGLYCERIN
     Indication: Pain
     Dosage: UNK
     Route: 065
     Dates: start: 20130902
  24. NITROGLYCERIN [Concomitant]
     Active Substance: NITROGLYCERIN
     Indication: Cardiovascular disorder
  25. ACETAMINOPHEN\CODEINE PHOSPHATE [Concomitant]
     Active Substance: ACETAMINOPHEN\CODEINE PHOSPHATE
     Indication: Pain in extremity
     Dosage: UNK
     Route: 065
     Dates: start: 20110616
  26. BETAMETHASONE DIPROPIONATE\CLOTRIMAZOLE [Concomitant]
     Active Substance: BETAMETHASONE DIPROPIONATE\CLOTRIMAZOLE
     Indication: Psoriasis
     Dosage: UNK
     Route: 065
     Dates: start: 20150626
  27. METHOTREXATE [Concomitant]
     Active Substance: METHOTREXATE
     Indication: Psoriasis
     Dosage: UNK
     Route: 065
     Dates: start: 20150727
  28. SERTRALINE HYDROCHLORIDE [Concomitant]
     Active Substance: SERTRALINE HYDROCHLORIDE
     Indication: Depression
     Dosage: UNK
     Route: 065
     Dates: start: 20110816
  29. SERTRALINE HYDROCHLORIDE [Concomitant]
     Active Substance: SERTRALINE HYDROCHLORIDE
     Dosage: UNK
     Route: 065
     Dates: start: 20110616
  30. ACETAMINOPHEN [Concomitant]
     Active Substance: ACETAMINOPHEN
     Indication: Pain in extremity
     Dosage: UNK
     Route: 065
     Dates: start: 20110616
  31. ACETAMINOPHEN [Concomitant]
     Active Substance: ACETAMINOPHEN
     Dosage: UNK
     Route: 065
     Dates: start: 20160616
  32. CODEINE PHOSPHATE [Concomitant]
     Active Substance: CODEINE PHOSPHATE
     Indication: Product used for unknown indication
     Dosage: UNK
     Route: 065
  33. SACUBITRIL [Concomitant]
     Active Substance: SACUBITRIL
     Indication: Left ventricular dysfunction
     Dosage: UNK, 49/51
     Route: 065
     Dates: start: 20160601
  34. SACUBITRIL [Concomitant]
     Active Substance: SACUBITRIL
     Dosage: UNK, 49/51
     Route: 065
     Dates: start: 20160701

REACTIONS (12)
  - Hypotension [Recovered/Resolved]
  - Cardiac failure [Unknown]
  - Pulmonary oedema [Unknown]
  - Angina pectoris [Unknown]
  - Ventricular dysfunction [Unknown]
  - Psoriasis [Unknown]
  - Contusion [Recovered/Resolved]
  - Fluid retention [Unknown]
  - Presyncope [Unknown]
  - Anaemia [Unknown]
  - Oedema peripheral [Not Recovered/Not Resolved]
  - Drug interaction [Unknown]

NARRATIVE: CASE EVENT DATE: 20130919
